FAERS Safety Report 5845359-3 (Version None)
Quarter: 2008Q3

REPORT INFORMATION
  Report Type: 
  Country: None (occurrence: None)
  Receive Date: 20080814
  Receipt Date: 20080807
  Transmission Date: 20090109
  Serious: Yes (Other)
  Sender: FDA-Public Use
  Company Number: GB-JNJFOC-20080603779

PATIENT
  Sex: Male

DRUGS (7)
  1. CONCERTA [Suspect]
     Indication: AGGRESSION
     Route: 048
  2. CONCERTA [Suspect]
     Indication: ANXIETY
     Route: 048
  3. CONCERTA [Suspect]
     Indication: AUTISM
     Route: 048
  4. RISPERDAL [Suspect]
     Indication: ANXIETY
     Route: 048
  5. ATOMOXETINE HCL [Concomitant]
     Indication: ATTENTION DEFICIT/HYPERACTIVITY DISORDER
     Route: 065
  6. CETIRIZINE HCL [Concomitant]
     Indication: SEASONAL ALLERGY
     Route: 065
  7. LACTULOSE [Concomitant]
     Indication: CONSTIPATION
     Route: 065

REACTIONS (2)
  - ANXIETY [None]
  - BLOOD PROLACTIN INCREASED [None]
